FAERS Safety Report 24894776 (Version 1)
Quarter: 2025Q1

REPORT INFORMATION
  Report Type: Report from Study
  Country: FR (occurrence: FR)
  Receive Date: 20250128
  Receipt Date: 20250128
  Transmission Date: 20250409
  Serious: Yes (Other)
  Sender: MYLAN
  Company Number: FR-MYLANLABS-2025M1007611

PATIENT
  Age: 4 Year
  Sex: Male
  Weight: 15 kg

DRUGS (12)
  1. NEURONTIN [Suspect]
     Active Substance: GABAPENTIN
     Indication: Pain in extremity
     Dosage: 25 MILLIGRAM, TID
     Route: 048
     Dates: start: 20230616, end: 20230703
  2. VINCRISTINE SULFATE [Suspect]
     Active Substance: VINCRISTINE SULFATE
     Indication: Leukaemia
     Dosage: 0.98 MILLIGRAM, QW
     Route: 042
     Dates: start: 20230527, end: 20230612
  3. VINCRISTINE SULFATE [Suspect]
     Active Substance: VINCRISTINE SULFATE
     Route: 042
  4. MITOXANTRONE HYDROCHLORIDE [Suspect]
     Active Substance: MITOXANTRONE HYDROCHLORIDE
     Indication: Leukaemia
     Dosage: 6.4 MILLIGRAM, QD
     Route: 042
     Dates: start: 20230525, end: 20230526
  5. PEGASPARGASE [Suspect]
     Active Substance: PEGASPARGASE
     Indication: Leukaemia
     Route: 042
     Dates: start: 20230525, end: 20230525
  6. DEXAMETHASONE SODIUM PHOSPHATE [Suspect]
     Active Substance: DEXAMETHASONE SODIUM PHOSPHATE
     Indication: Leukaemia
     Dosage: 6.5 MILLIGRAM, BID (6.5 MG TWICE A DAY (BID))
     Route: 042
     Dates: start: 20230525, end: 20230529
  7. DEXAMETHASONE SODIUM PHOSPHATE [Suspect]
     Active Substance: DEXAMETHASONE SODIUM PHOSPHATE
     Dosage: 6.5 MILLIGRAM, BID (6.5 MG TWICE A DAY (BID))
     Route: 042
     Dates: start: 20230608, end: 20230612
  8. DEXAMETHASONE SODIUM PHOSPHATE [Suspect]
     Active Substance: DEXAMETHASONE SODIUM PHOSPHATE
     Route: 042
  9. MELATONIN [Suspect]
     Active Substance: MELATONIN
     Indication: Insomnia
     Dosage: 2 MILLIGRAM, QD (ORAL AT 2 MG DAILY)
     Route: 048
     Dates: start: 20230616, end: 20230703
  10. BACTRIM [Suspect]
     Active Substance: SULFAMETHOXAZOLE\TRIMETHOPRIM
     Indication: Infection prophylaxis
     Dosage: 400 MILLIGRAM, 3XW (400 MG THIRD IN WEEK)
     Route: 048
     Dates: start: 20230622, end: 20230703
  11. SERETIDE [Concomitant]
     Active Substance: FLUTICASONE PROPIONATE\SALMETEROL XINAFOATE
     Dosage: 125 MICROGRAM, BID (125 UG TWICE A DAY (BID))
     Route: 055
     Dates: start: 20230623
  12. ACETAMINOPHEN [Concomitant]
     Active Substance: ACETAMINOPHEN
     Route: 048
     Dates: start: 20230623

REACTIONS (1)
  - Hepatic cytolysis [Recovered/Resolved]

NARRATIVE: CASE EVENT DATE: 20230614
